FAERS Safety Report 5828103-5 (Version None)
Quarter: 2008Q3

REPORT INFORMATION
  Report Type: 
  Country: None (occurrence: None)
  Receive Date: 20080729
  Receipt Date: 20080729
  Transmission Date: 20090109
  Serious: Yes (Hospitalization)
  Sender: FDA-Public Use
  Company Number: None

PATIENT
  Sex: Male
  Weight: 108.7 kg

DRUGS (2)
  1. CISPLATIN [Suspect]
     Dosage: 88 MG
     Dates: end: 20080707
  2. NAVELBINE [Suspect]
     Dosage: 70 MG
     Dates: end: 20080714

REACTIONS (4)
  - CONDITION AGGRAVATED [None]
  - FATIGUE [None]
  - FEBRILE NEUTROPENIA [None]
  - NEPHROPATHY TOXIC [None]
